FAERS Safety Report 11927529 (Version 5)
Quarter: 2021Q1

REPORT INFORMATION
  Report Type: Spontaneous
  Country: GB (occurrence: GB)
  Receive Date: 20160119
  Receipt Date: 20210226
  Transmission Date: 20210419
  Serious: Yes (Hospitalization, Other)
  Sender: FDA-Public Use
  Company Number: GB-BRISTOL-MYERS SQUIBB COMPANY-BMS-2016-000628

PATIENT
  Age: 36 Year
  Sex: Female

DRUGS (8)
  1. SOFOSBUVIR [Suspect]
     Active Substance: SOFOSBUVIR
     Indication: HEPATITIS C
     Dosage: 400 MG, QD
     Route: 065
     Dates: start: 201408
  2. RIBAVIRIN. [Suspect]
     Active Substance: RIBAVIRIN
     Indication: HEPATITIS C
     Dosage: 600 MG, BID
     Route: 065
     Dates: start: 201408
  3. RIGEVIDON [ETHINYLESTRADIOL;LEVONORGESTREL] [Suspect]
     Active Substance: ETHINYL ESTRADIOL\LEVONORGESTREL
     Indication: POLYCYSTIC OVARIES
     Dosage: 1 DOSAGE FORM, QD
     Route: 065
     Dates: start: 20140731
  4. DESOGESTREL [Interacting]
     Active Substance: DESOGESTREL
     Indication: POLYCYSTIC OVARIES
     Dosage: 75 MICROGRAM, QD
     Route: 048
     Dates: start: 2010, end: 201405
  5. NORETHISTERONE [Suspect]
     Active Substance: NORETHINDRONE
     Indication: POLYCYSTIC OVARIES
     Dosage: 5 MG, FOR 3 WEEKS EACH MONTH
     Route: 065
     Dates: start: 2010, end: 201405
  6. NORETHISTERONE [Suspect]
     Active Substance: NORETHINDRONE
     Dosage: 5 MILLIGRAM, BID
     Route: 065
     Dates: start: 201407
  7. DACLATASVIR DIHYDROCHLORIDE [Suspect]
     Active Substance: DACLATASVIR DIHYDROCHLORIDE
     Indication: HEPATITIS C
     Dosage: 60 MG, QD
     Route: 065
     Dates: start: 201408
  8. LEVOTHYROXINE SODIUM. [Concomitant]
     Active Substance: LEVOTHYROXINE SODIUM
     Indication: PRODUCT USED FOR UNKNOWN INDICATION
     Dosage: 150 ?G, QD
     Route: 065

REACTIONS (3)
  - Hepatic failure [Recovering/Resolving]
  - Drug-induced liver injury [Not Recovered/Not Resolved]
  - Drug interaction [Unknown]

NARRATIVE: CASE EVENT DATE: 2014
